FAERS Safety Report 6833669-2 (Version None)
Quarter: 2010Q3

REPORT INFORMATION
  Report Type: 
  Country: None (occurrence: None)
  Receive Date: 20100712
  Receipt Date: 20070329
  Transmission Date: 20110219
  Serious: No
  Sender: FDA-Public Use
  Company Number: US-PFIZER INC-2007027014

PATIENT
  Sex: Female
  Weight: 63.5 kg

DRUGS (4)
  1. CHANTIX [Suspect]
     Indication: SMOKING CESSATION THERAPY
     Dates: start: 20070326
  2. ALL OTHER NON-THERAPEUTIC PRODUCTS [Suspect]
  3. INTRAUTERINE CONTRACEPTIVE DEVICE [Concomitant]
  4. ATENOLOL [Concomitant]
     Indication: HYPERTENSION

REACTIONS (6)
  - DIZZINESS [None]
  - HYPERHIDROSIS [None]
  - HYPERSENSITIVITY [None]
  - NAUSEA [None]
  - PALLOR [None]
  - PRESYNCOPE [None]
